FAERS Safety Report 4595635-X (Version None)
Quarter: 2005Q1

REPORT INFORMATION
  Report Type: 
  Country: None (occurrence: None)
  Receive Date: 20050224
  Receipt Date: 20041125
  Transmission Date: 20050727
  Serious: Yes (Hospitalization)
  Sender: FDA-Public Use
  Company Number: 6001390

PATIENT
  Age: 54 Year
  Sex: Female

DRUGS (5)
  1. BISOPROLOL FUMARATE [Suspect]
     Indication: HYPERTENSION
     Dosage: 5  MG (5 MG, 1 IN 1 D)
  2. CORIFEO            (LERCANIDIPINE) [Suspect]
     Indication: HYPERTENSION
     Dosage: 10 MG (10 MG, 1 IN 1 D) ORAL
     Route: 048
     Dates: start: 20020426, end: 20020426
  3. ENABERTA5                    (ENALAPRIL) [Suspect]
     Indication: HYPERTENSION
     Dosage: 5 MG (5 MG, 1 IN 1 D), ORAL
     Route: 048
  4. TACHYSTIN (CAPSULES) (DIHYDROTACHYSTEROL) [Concomitant]
  5. BERLTHYROX (TABLETS) (LEVOTHYROXINE SODIUM) [Concomitant]

REACTIONS (5)
  - ASTHENIA [None]
  - DIZZINESS [None]
  - DRUG INTERACTION [None]
  - SYNCOPE [None]
  - VOMITING [None]
